FAERS Safety Report 6271874-7 (Version None)
Quarter: 2009Q3

REPORT INFORMATION
  Report Type: 
  Country: None (occurrence: None)
  Receive Date: 20090717
  Receipt Date: 20090708
  Transmission Date: 20100115
  Serious: Yes (Hospitalization, Other)
  Sender: FDA-Public Use
  Company Number: PHEH2009US07287

PATIENT
  Sex: Male

DRUGS (2)
  1. EXJADE [Suspect]
     Dosage: 500 MG, TID
     Route: 048
  2. EXJADE [Suspect]
     Dosage: NO TREATMENT

REACTIONS (2)
  - HEPATIC ENZYME INCREASED [None]
  - SEPSIS [None]
